FAERS Safety Report 5654798-5 (Version None)
Quarter: 2008Q1

REPORT INFORMATION
  Report Type: 
  Country: None (occurrence: None)
  Receive Date: 20080307
  Receipt Date: 20070719
  Transmission Date: 20080703
  Serious: No
  Sender: FDA-Public Use
  Company Number: A0665283A

PATIENT
  Age: 69 Year
  Sex: Male

DRUGS (5)
  1. REQUIP [Suspect]
     Indication: RESTLESS LEGS SYNDROME
     Route: 048
     Dates: start: 20070619, end: 20070716
  2. CELEBREX [Concomitant]
  3. ACIPHEX [Concomitant]
  4. UNKNOWN MEDICATION [Concomitant]
  5. LYRICA [Concomitant]

REACTIONS (2)
  - DYSURIA [None]
  - LIBIDO INCREASED [None]
